FAERS Safety Report 12180671 (Version 3)
Quarter: 2016Q2

REPORT INFORMATION
  Report Type: Report from Study
  Country: US (occurrence: US)
  Receive Date: 20160315
  Receipt Date: 20160427
  Transmission Date: 20160815
  Serious: Yes (Hospitalization)
  Sender: FDA-Public Use
  Company Number: US-BIOGEN-2016BI00201878

PATIENT
  Age: 16 Year
  Sex: Male

DRUGS (4)
  1. ALPROLIX [Suspect]
     Active Substance: EFTRENONACOG ALFA
     Route: 042
  2. ALPROLIX [Suspect]
     Active Substance: EFTRENONACOG ALFA
     Indication: FACTOR IX DEFICIENCY
     Route: 042
     Dates: start: 20151009
  3. ALPROLIX [Suspect]
     Active Substance: EFTRENONACOG ALFA
     Route: 042
     Dates: start: 20151110, end: 20160204
  4. ALPROLIX [Suspect]
     Active Substance: EFTRENONACOG ALFA
     Route: 042
     Dates: start: 20160229

REACTIONS (11)
  - Subarachnoid haemorrhage [Unknown]
  - Splenic rupture [Unknown]
  - Extradural haematoma [Unknown]
  - Multiple fractures [Unknown]
  - Pain [Unknown]
  - Eyelid injury [Unknown]
  - Subdural haematoma [Unknown]
  - Pulmonary contusion [Unknown]
  - Road traffic accident [Recovered/Resolved]
  - Gastrointestinal injury [Unknown]
  - Peritoneal haemorrhage [Unknown]

NARRATIVE: CASE EVENT DATE: 20160213
